FAERS Safety Report 15100030 (Version 1)
Quarter: 2018Q3

REPORT INFORMATION
  Report Type: Spontaneous
  Country: FR (occurrence: FR)
  Receive Date: 20180703
  Receipt Date: 20180703
  Transmission Date: 20181010
  Serious: Yes (Hospitalization)
  Sender: FDA-Public Use
  Company Number: FR-ACCORD-069040

PATIENT
  Age: 63 Year
  Sex: Female

DRUGS (8)
  1. CISPLATIN. [Suspect]
     Active Substance: CISPLATIN
     Indication: LARYNGEAL CANCER
     Route: 042
     Dates: start: 20170406, end: 20170406
  2. TENORMINE [Concomitant]
     Active Substance: ATENOLOL
     Dosage: STRENGTH: 50 MG
     Route: 048
  3. MOPRAL [Concomitant]
     Active Substance: OMEPRAZOLE
     Dosage: STRENGTH: 20 MG
     Route: 048
  4. AERIUS [Concomitant]
     Active Substance: DESLORATADINE
     Route: 048
  5. KARDEGIC [Concomitant]
     Active Substance: ASPIRIN DL-LYSINE
     Dosage: STRENGTH: 75 MG
     Route: 048
  6. UN?ALFA [Concomitant]
     Active Substance: ALFACALCIDOL
     Dosage: STRENGTH: 0.10 MCG
     Route: 048
  7. LEVOTHYROX [Concomitant]
     Active Substance: LEVOTHYROXINE
     Dosage: STRENGTH: 75 MICROGRAMS
     Route: 048
  8. ELISOR [Concomitant]
     Active Substance: PRAVASTATIN SODIUM
     Route: 048

REACTIONS (2)
  - Acute kidney injury [Recovering/Resolving]
  - Hyperkalaemia [Recovering/Resolving]

NARRATIVE: CASE EVENT DATE: 20170416
